FAERS Safety Report 16225066 (Version 2)
Quarter: 2022Q4

REPORT INFORMATION
  Report Type: Spontaneous
  Country: GB (occurrence: GB)
  Receive Date: 20190422
  Receipt Date: 20221130
  Transmission Date: 20230113
  Serious: Yes (Hospitalization, Other)
  Sender: FDA-Public Use
  Company Number: GB-SA-2019SA082116

PATIENT
  Age: 59 Year
  Sex: Male

DRUGS (10)
  1. HALOPERIDOL DECANOATE [Interacting]
     Active Substance: HALOPERIDOL DECANOATE
     Indication: Product used for unknown indication
     Route: 030
  2. DONEPEZIL HYDROCHLORIDE [Suspect]
     Active Substance: DONEPEZIL HYDROCHLORIDE
     Indication: Product used for unknown indication
     Route: 065
  3. DEPAKOTE [Interacting]
     Active Substance: DIVALPROEX SODIUM
     Indication: Product used for unknown indication
     Route: 065
     Dates: start: 201211
  4. DEPAKOTE [Interacting]
     Active Substance: DIVALPROEX SODIUM
     Route: 065
  5. DEPAKOTE [Interacting]
     Active Substance: DIVALPROEX SODIUM
     Route: 065
     Dates: start: 201211
  6. ASENAPINE [Interacting]
     Active Substance: ASENAPINE
     Indication: Product used for unknown indication
     Route: 065
     Dates: start: 2013
  7. LITHIUM [Suspect]
     Active Substance: LITHIUM
     Indication: Product used for unknown indication
     Route: 065
     Dates: start: 2008, end: 2012
  8. LAMOTRIGINE [Suspect]
     Active Substance: LAMOTRIGINE
     Indication: Product used for unknown indication
     Route: 065
     Dates: start: 2017
  9. PHENOTHIAZINE [Concomitant]
     Active Substance: PHENOTHIAZINE
     Indication: Product used for unknown indication
     Route: 065
  10. ASPIRIN [Concomitant]
     Active Substance: ASPIRIN
     Indication: Product used for unknown indication
     Route: 065
     Dates: start: 2013

REACTIONS (32)
  - Cellulitis [Recovered/Resolved]
  - Cerebral atrophy [Unknown]
  - Deafness [Unknown]
  - Thermal burns of eye [Recovering/Resolving]
  - Dementia Alzheimer^s type [Unknown]
  - Vascular dementia [Unknown]
  - Liver disorder [Unknown]
  - Feeding disorder [Unknown]
  - Toxicity to various agents [Unknown]
  - Urinary tract infection [Unknown]
  - Vomiting [Unknown]
  - Swelling face [Unknown]
  - Hypotension [Unknown]
  - Drug interaction [Unknown]
  - Eyelid oedema [Recovering/Resolving]
  - Oedema [Unknown]
  - Decreased appetite [Unknown]
  - Labelled drug-drug interaction issue [Unknown]
  - Conjunctivitis [Unknown]
  - Depressed mood [Unknown]
  - Tinnitus [Unknown]
  - Drug resistance [Unknown]
  - Weight decreased [Unknown]
  - Sedation [Unknown]
  - Disease recurrence [Unknown]
  - Depression [Unknown]
  - Drug effective for unapproved indication [Unknown]
  - Product use in unapproved indication [Unknown]
  - Selective eating disorder [Unknown]
  - Somnolence [Unknown]
  - Off label use [Unknown]
  - Incorrect dose administered [Unknown]

NARRATIVE: CASE EVENT DATE: 20130101
